FAERS Safety Report 11791632 (Version 1)
Quarter: 2015Q4

REPORT INFORMATION
  Report Type: Spontaneous
  Country: US (occurrence: US)
  Receive Date: 20151201
  Receipt Date: 20151201
  Transmission Date: 20160305
  Serious: No
  Sender: FDA-Public Use
  Company Number: US-GLAXOSMITHKLINE-US2015166313

PATIENT
  Age: 66 Year
  Sex: Male

DRUGS (4)
  1. COREG CR [Suspect]
     Active Substance: CARVEDILOL PHOSPHATE
     Indication: VASCULAR GRAFT
     Dosage: 10 MG, QD
     Route: 048
     Dates: start: 2005
  2. ATORVASTATIN [Concomitant]
     Active Substance: ATORVASTATIN
  3. DIGOXIN. [Concomitant]
     Active Substance: DIGOXIN
  4. CLOPIDOGREL BISULFATE. [Concomitant]
     Active Substance: CLOPIDOGREL BISULFATE

REACTIONS (1)
  - Oropharyngeal pain [Recovered/Resolved]

NARRATIVE: CASE EVENT DATE: 20151120
